FAERS Safety Report 8119780-7 (Version None)
Quarter: 2012Q1

REPORT INFORMATION
  Report Type: 
  Country: None (occurrence: None)
  Receive Date: 20120207
  Receipt Date: 20111123
  Transmission Date: 20120608
  Serious: Yes (Hospitalization)
  Sender: FDA-Public Use
  Company Number: RU-GLAXOSMITHKLINE-Z0012304C

PATIENT
  Sex: Male
  Weight: 95 kg

DRUGS (3)
  1. ARZERRA [Suspect]
     Indication: CHRONIC LYMPHOCYTIC LEUKAEMIA REFRACTORY
     Route: 042
     Dates: start: 20111006
  2. AMPHOTERICIN B [Concomitant]
     Indication: ANTIFUNGAL TREATMENT
     Dosage: 10MG PER DAY
     Route: 042
     Dates: start: 20111126, end: 20111127
  3. AMPHOTERICIN B [Concomitant]
     Dosage: 25MG PER DAY
     Route: 042
     Dates: start: 20111127, end: 20111128

REACTIONS (1)
  - FEBRILE NEUTROPENIA [None]
